FAERS Safety Report 12711246 (Version 1)
Quarter: 2016Q3

REPORT INFORMATION
  Report Type: Report from Study
  Country: US (occurrence: US)
  Receive Date: 20160902
  Receipt Date: 20160902
  Transmission Date: 20161109
  Serious: No
  Sender: FDA-Public Use
  Company Number: US-009507513-1608USA007712

PATIENT
  Sex: Female

DRUGS (1)
  1. INTRON A [Suspect]
     Active Substance: INTERFERON ALFA-2B
     Indication: ESSENTIAL THROMBOCYTHAEMIA
     Dosage: UNK, STRENGTH REPORTED AS 10 (UNIT NOT PROVIDED)
     Route: 042

REACTIONS (1)
  - Exposure during pregnancy [Unknown]
